FAERS Safety Report 7944043-X (Version None)
Quarter: 2011Q4

REPORT INFORMATION
  Report Type: 
  Country: None (occurrence: None)
  Receive Date: 20111128
  Receipt Date: 20111117
  Transmission Date: 20120403
  Serious: Yes (Death)
  Sender: FDA-Public Use
  Company Number: US-CELGENEUS-163-21880-11092126

PATIENT
  Sex: Male
  Weight: 81.72 kg

DRUGS (11)
  1. VALTREX [Concomitant]
     Dosage: 500 MILLIGRAM
     Route: 065
  2. OXYCODONE HCL [Concomitant]
     Dosage: 15 MILLIGRAM
     Route: 048
  3. BACTRIM DS [Concomitant]
     Route: 065
  4. CARAFATE [Concomitant]
     Dosage: 1 GRAM
     Route: 048
  5. ALPRAZOLAM [Concomitant]
     Route: 065
  6. NEUPOGEN [Concomitant]
     Dosage: 480 MICROGRAM
     Route: 058
  7. PERIDEX [Concomitant]
     Route: 065
  8. LASIX [Concomitant]
     Dosage: 20 MILLIGRAM
     Route: 048
  9. REVLIMID [Suspect]
     Indication: MYELODYSPLASTIC SYNDROME
     Dosage: 10 MILLIGRAM
     Route: 048
     Dates: start: 20110808, end: 20110801
  10. AMICAR [Concomitant]
     Dosage: 2 GRAM
     Route: 048
  11. VORICONAZOLE [Concomitant]
     Dosage: 100 MILLIGRAM
     Route: 065

REACTIONS (2)
  - CEREBROVASCULAR ACCIDENT [None]
  - MYELODYSPLASTIC SYNDROME [None]
